FAERS Safety Report 5427077-9 (Version None)
Quarter: 2007Q3

REPORT INFORMATION
  Report Type: 
  Country: None (occurrence: None)
  Receive Date: 20070824
  Receipt Date: 20070824
  Transmission Date: 20080115
  Serious: Yes (Hospitalization)
  Sender: FDA-Public Use
  Company Number: None

PATIENT
  Sex: Male
  Weight: 106.6 kg

DRUGS (13)
  1. TACROLIMUS [Suspect]
     Indication: IMMUNOSUPPRESSION
     Dosage: 2MG PO BID
     Route: 048
     Dates: start: 19990501
  2. REGULAR INSULIN [Concomitant]
  3. INSULIN ASPART [Concomitant]
  4. GLARGINE [Concomitant]
  5. ROSUVASTATIN [Concomitant]
  6. PREDNISONE [Concomitant]
  7. MYCOPHENOLATE MOFETIL [Concomitant]
  8. RANITIDINE [Concomitant]
  9. FISH OIL [Concomitant]
  10. METOPROLOL SUCCINATE [Concomitant]
  11. AMLODIPINE [Concomitant]
  12. OLMESARTAN MEDOXOMIL [Concomitant]
  13. ACETAMINOPHEN AND HYDROCODONE BITARTRATE [Concomitant]

REACTIONS (4)
  - AMMONIA INCREASED [None]
  - HEPATIC CIRRHOSIS [None]
  - MENTAL STATUS CHANGES [None]
  - PORTAL HYPERTENSION [None]
